FAERS Safety Report 19887916 (Version 1)
Quarter: 2021Q3

REPORT INFORMATION
  Report Type: Spontaneous
  Country: FR (occurrence: FR)
  Receive Date: 20210927
  Receipt Date: 20210927
  Transmission Date: 20211014
  Serious: Yes (Other)
  Sender: FDA-Public Use
  Company Number: FR-MYLANLABS-2021M1065067

PATIENT
  Age: 22 Year
  Sex: Male

DRUGS (3)
  1. PREGABALIN. [Suspect]
     Active Substance: PREGABALIN
     Indication: PRODUCT USED FOR UNKNOWN INDICATION
     Dosage: UNK, LARGE QUANTITY NOTFURTHER SPECIFIED
     Route: 065
  2. CANNABIS [Suspect]
     Active Substance: CANNABIS SATIVA SUBSP. INDICA TOP
     Indication: PRODUCT USED FOR UNKNOWN INDICATION
     Dosage: UNK, NOT SPECIFIED
     Route: 055
  3. CLONAZEPAM. [Suspect]
     Active Substance: CLONAZEPAM
     Indication: PRODUCT USED FOR UNKNOWN INDICATION
     Dosage: UNK, NOT SPECIFIED
     Route: 065

REACTIONS (3)
  - Altered state of consciousness [Recovered/Resolved]
  - Electrocardiogram abnormal [Unknown]
  - Drug abuse [Unknown]

NARRATIVE: CASE EVENT DATE: 202106
